FAERS Safety Report 8862194 (Version 2)
Quarter: 2013Q1

REPORT INFORMATION
  Report Type: Spontaneous
  Country: US (occurrence: US)
  Receive Date: 20121026
  Receipt Date: 20130222
  Transmission Date: 20140127
  Serious: Yes (Hospitalization)
  Sender: FDA-Public Use
  Company Number: US-BAYER-2012-111163

PATIENT
  Age: 25 Year
  Sex: Female
  Weight: 86.62 kg

DRUGS (10)
  1. YAZ [Suspect]
     Indication: CONTRACEPTION
     Dosage: UNK
     Dates: start: 200205, end: 200909
  2. YAZ [Suspect]
     Indication: MENSTRUATION IRREGULAR
  3. YASMIN [Suspect]
     Indication: CONTRACEPTION
     Dosage: UNK
     Dates: start: 200205, end: 200909
  4. YASMIN [Suspect]
     Indication: MENSTRUATION IRREGULAR
  5. OCELLA [Suspect]
     Indication: CONTRACEPTION
     Dosage: UNK
     Dates: start: 200205, end: 200909
  6. OCELLA [Suspect]
     Indication: MENSTRUATION IRREGULAR
  7. METFORMIN [Concomitant]
     Indication: POLYCYSTIC OVARIES
  8. DICYCLOMINE [Concomitant]
     Indication: IRRITABLE BOWEL SYNDROME
  9. SPIRONOLACTONE [Concomitant]
  10. TRI-SPRINTEC [Concomitant]
     Dosage: UNK
     Dates: start: 2009

REACTIONS (11)
  - Gallbladder polyp [None]
  - Gallbladder polyp [None]
  - Cholecystitis chronic [None]
  - Emotional distress [None]
  - Abdominal pain [None]
  - Injury [None]
  - Pain [None]
  - General physical health deterioration [None]
  - Anxiety [None]
  - Pain [None]
  - Mental disorder [None]
